FAERS Safety Report 5657287-7 (Version None)
Quarter: 2008Q1

REPORT INFORMATION
  Report Type: 
  Country: None (occurrence: None)
  Receive Date: 20080310
  Receipt Date: 20080310
  Transmission Date: 20080703
  Serious: No
  Sender: FDA-Public Use
  Company Number: US-BAXTER-2008BH001908

PATIENT
  Sex: Male
  Weight: 73 kg

DRUGS (9)
  1. HEPARIN SODIUM [Suspect]
     Indication: PROPHYLAXIS
     Route: 033
     Dates: start: 20070401, end: 20080201
  2. HEPARIN SODIUM [Suspect]
     Route: 033
     Dates: start: 20070401, end: 20080201
  3. HEPARIN SODIUM [Suspect]
     Route: 033
     Dates: start: 20070401, end: 20080201
  4. ATENOLOL [Concomitant]
     Indication: HYPERTENSION
     Route: 048
  5. LASIX [Concomitant]
     Indication: HYPERTENSION
     Route: 048
  6. PHOSLO [Concomitant]
     Indication: PHOSPHORUS METABOLISM DISORDER
     Route: 048
  7. SENSIPAR [Concomitant]
     Indication: DRUG USE FOR UNKNOWN INDICATION
     Route: 048
  8. VITAMIN B COMPLEX CAP [Concomitant]
     Indication: DRUG USE FOR UNKNOWN INDICATION
     Route: 048
  9. LISINOPRIL [Concomitant]
     Indication: HYPERTENSION
     Route: 048

REACTIONS (4)
  - DIARRHOEA [None]
  - MUSCLE SPASMS [None]
  - VOMITING [None]
  - WEIGHT DECREASED [None]
